FAERS Safety Report 9999729 (Version 1)
Quarter: 2014Q1

REPORT INFORMATION
  Report Type: Spontaneous
  Country: US (occurrence: None)
  Receive Date: 20140228
  Receipt Date: 20140228
  Transmission Date: 20141002
  Serious: Yes (Other)
  Sender: FDA-Public Use
  Company Number: PHEH2013US010881

PATIENT
  Age: 51 Year
  Sex: Male

DRUGS (9)
  1. NEORAL [Suspect]
  2. PREDNISONE [Concomitant]
  3. CELLCEPT (MYCOPHENOLATE MOFETIL) [Concomitant]
  4. ATENOLOL [Concomitant]
  5. DIOVAN (VALSARTAN) [Concomitant]
  6. NORVASC (AMLODIPINE BESILATE) [Concomitant]
  7. CELEXA (CITALOPRAM HYDROBROMIDE) [Concomitant]
  8. BACTRIM DS (SULFAMETHOXAZOLE, TRIMETHOPRIM) [Concomitant]
  9. OMEPRAZOLE [Concomitant]

REACTIONS (2)
  - Blindness unilateral [None]
  - Acrochordon [None]
